FAERS Safety Report 20826131 (Version 1)
Quarter: 2022Q2

REPORT INFORMATION
  Report Type: Spontaneous
  Country: IT (occurrence: IT)
  Receive Date: 20220513
  Receipt Date: 20220513
  Transmission Date: 20220720
  Serious: Yes (Hospitalization, Other)
  Sender: FDA-Public Use
  Company Number: IT-SLATE RUN PHARMACEUTICALS-22IT001075

PATIENT

DRUGS (11)
  1. AZITHROMYCIN [Suspect]
     Active Substance: AZITHROMYCIN
     Indication: Respiratory tract infection
     Dosage: UNK
  2. VANCOMYCIN HYDROCHLORIDE [Suspect]
     Active Substance: VANCOMYCIN HYDROCHLORIDE
     Indication: Staphylococcal infection
     Dosage: UNK
  3. OXYGEN [Concomitant]
     Active Substance: OXYGEN
     Indication: Pneumonia
     Dosage: 1 UNK
     Route: 045
  4. OXYGEN [Concomitant]
     Active Substance: OXYGEN
     Dosage: 40 UNK
     Route: 045
  5. UNSPECIFIED INGREDIENT [Concomitant]
     Active Substance: UNSPECIFIED INGREDIENT
     Indication: Pneumonia
     Dosage: 8000 INTERNATIONAL UNIT
  6. UNSPECIFIED INGREDIENT [Concomitant]
     Active Substance: UNSPECIFIED INGREDIENT
     Indication: Respiratory tract infection
     Dosage: 4000 INTERNATIONAL UNIT
  7. CEFTRIAXONE [Concomitant]
     Active Substance: CEFTRIAXONE
     Indication: Pneumonia
  8. ACETAMINOPHEN [Concomitant]
     Active Substance: ACETAMINOPHEN
     Indication: Pneumonia
  9. DEXAMETHASONE [Concomitant]
     Active Substance: DEXAMETHASONE
     Indication: Respiratory tract infection
  10. PANTOPRAZOLE [Concomitant]
     Active Substance: PANTOPRAZOLE
     Indication: Respiratory tract infection
  11. PIPERACILLIN AND TAZOBACTAM [Concomitant]
     Active Substance: PIPERACILLIN SODIUM\TAZOBACTAM SODIUM
     Indication: Respiratory tract infection

REACTIONS (7)
  - Acute respiratory distress syndrome [Recovered/Resolved]
  - Staphylococcal infection [Recovered/Resolved]
  - Cholecystitis [Recovered/Resolved]
  - Hydronephrosis [Recovered/Resolved]
  - Psychomotor hyperactivity [Recovered/Resolved]
  - Intracardiac thrombus [Unknown]
  - Maternal exposure during pregnancy [Recovered/Resolved]
